FAERS Safety Report 13613348 (Version 1)
Quarter: 2017Q2

REPORT INFORMATION
  Report Type: Spontaneous
  Country: US (occurrence: US)
  Receive Date: 20170605
  Receipt Date: 20170605
  Transmission Date: 20170830
  Serious: Yes (Death)
  Sender: FDA-Public Use
  Company Number: US-VIFOR (INTERNATIONAL) INC.-VIT-2017-06224

PATIENT
  Sex: Male

DRUGS (9)
  1. ATACAND [Concomitant]
     Active Substance: CANDESARTAN CILEXETIL
  2. PRANDIN [Concomitant]
     Active Substance: REPAGLINIDE
  3. LEVEMIR [Concomitant]
     Active Substance: INSULIN DETEMIR
  4. GABAPENTIN. [Concomitant]
     Active Substance: GABAPENTIN
  5. VELTASSA [Suspect]
     Active Substance: PATIROMER
     Indication: HYPERKALAEMIA
     Route: 048
     Dates: start: 20160323
  6. RENVELA [Concomitant]
     Active Substance: SEVELAMER CARBONATE
  7. PRAVACHOL [Concomitant]
     Active Substance: PRAVASTATIN SODIUM
  8. TUMS [Concomitant]
     Active Substance: CALCIUM CARBONATE
  9. DIALYVITE 3000 [Concomitant]
     Active Substance: .ALPHA.-TOCOPHEROL SUCCINATE, D-\ASCORBIC ACID\BIOTIN\CALCIUM PANTOTHENATE\COBALAMIN\FOLIC ACID\NIACINAMIDE\PYRIDOXINE HYDROCHLORIDE\RIBOFLAVIN\SELENOCYSTEINE\THIAMINE MONONITRATE\ZINC CITRATE

REACTIONS (1)
  - Death [Fatal]
